FAERS Safety Report 4280325-3 (Version None)
Quarter: 2004Q1

REPORT INFORMATION
  Report Type: 
  Country: None (occurrence: None)
  Receive Date: 20040126
  Receipt Date: 20040115
  Transmission Date: 20041129
  Serious: No
  Sender: FDA-Public Use
  Company Number: 2003-110416-NL

PATIENT
  Age: 82 Year
  Sex: Female

DRUGS (7)
  1. MIRTAZAPINE [Suspect]
     Dosage: 30 MG/45 MG, ORAL
     Route: 048
     Dates: start: 20030501
  2. OLANZAPINE [Suspect]
     Dosage: ORAL
     Route: 048
     Dates: start: 20030710, end: 20030718
  3. AMISULFRIDE [Suspect]
     Dosage: 100 MG, ORAL
     Route: 048
     Dates: start: 20030719, end: 20030721
  4. HEXACHLROPHENE [Concomitant]
  5. POTASSIUM CHLORIDE [Concomitant]
  6. HEPARIN-FRACTION, SODIUM SALT [Concomitant]
  7. MOVICOL [Concomitant]

REACTIONS (2)
  - HEPATIC ENZYME INCREASED [None]
  - PARKINSONISM [None]
